FAERS Safety Report 8063077-0 (Version None)
Quarter: 2012Q1

REPORT INFORMATION
  Report Type: 
  Country: None (occurrence: None)
  Receive Date: 20120123
  Receipt Date: 20101215
  Transmission Date: 20120608
  Serious: No
  Sender: FDA-Public Use
  Company Number: US-ENDO PHARMACEUTICALS INC.-OXYC20110047

PATIENT
  Sex: Female

DRUGS (3)
  1. OXYCODONE HCL [Suspect]
     Indication: PAIN
     Dosage: 30 MG, 1 TABLET AS NEEDED FOR PAIN
     Route: 048
  2. FOLIC ACID [Concomitant]
     Dosage: UNKNOWN
  3. VITAMIN D [Suspect]
     Dosage: UNKNOWN

REACTIONS (3)
  - SICKLE CELL ANAEMIA WITH CRISIS [None]
  - HEART RATE INCREASED [None]
  - CHEST DISCOMFORT [None]
